FAERS Safety Report 4510089-7 (Version None)
Quarter: 2004Q4

REPORT INFORMATION
  Report Type: 
  Country: None (occurrence: None)
  Receive Date: 20041119
  Receipt Date: 20041101
  Transmission Date: 20050328
  Serious: Yes (Hospitalization)
  Sender: FDA-Public Use
  Company Number: 23100205

PATIENT
  Age: 70 Year
  Sex: Female

DRUGS (5)
  1. ARGATROBAN [Suspect]
     Indication: ARTERIAL OCCLUSIVE DISEASE
     Dosage: 20 MG QD IV
     Route: 042
     Dates: start: 20040917, end: 20040922
  2. SOLITA-T3 INJECTION [Concomitant]
  3. DEPAS [Concomitant]
  4. EPADEL [Concomitant]
  5. LOCHOL [Concomitant]

REACTIONS (2)
  - HEPATIC CYST [None]
  - HEPATIC STEATOSIS [None]
